FAERS Safety Report 16513975 (Version 1)
Quarter: 2019Q3

REPORT INFORMATION
  Report Type: Spontaneous
  Country: US (occurrence: US)
  Receive Date: 20190701
  Receipt Date: 20190701
  Transmission Date: 20191004
  Serious: No
  Sender: FDA-Public Use
  Company Number: US-ROCHE-2294539

PATIENT
  Sex: Female
  Weight: 158.76 kg

DRUGS (3)
  1. KLONOPIN [Suspect]
     Active Substance: CLONAZEPAM
     Indication: ANXIETY
     Route: 065
     Dates: start: 201808
  2. LYRICA [Concomitant]
     Active Substance: PREGABALIN
     Dosage: ONE CAPSULE
     Route: 065
  3. AMBIEN [Concomitant]
     Active Substance: ZOLPIDEM TARTRATE
     Route: 065
     Dates: start: 201808

REACTIONS (2)
  - Weight increased [Unknown]
  - Memory impairment [Unknown]
